FAERS Safety Report 16571138 (Version 1)
Quarter: 2019Q3

REPORT INFORMATION
  Report Type: Spontaneous
  Country: US (occurrence: US)
  Receive Date: 20190712
  Receipt Date: 20190712
  Transmission Date: 20191004
  Serious: Yes (Disabling)
  Sender: FDA-Public Use
  Company Number: None

PATIENT
  Age: 62 Year
  Sex: Female
  Weight: 48.15 kg

DRUGS (7)
  1. TRAZODONE [Concomitant]
     Active Substance: TRAZODONE HYDROCHLORIDE
  2. TYLENOL [Concomitant]
     Active Substance: ACETAMINOPHEN
  3. PROLIA [Suspect]
     Active Substance: DENOSUMAB
     Indication: NEOPLASM MALIGNANT
  4. BUPROPION. [Concomitant]
     Active Substance: BUPROPION
  5. DONICEPIL [Concomitant]
  6. PROLIA [Suspect]
     Active Substance: DENOSUMAB
     Indication: OSTEOPOROSIS
  7. LORAZARAN [Concomitant]

REACTIONS (4)
  - Abscess jaw [None]
  - Pain in jaw [None]
  - Deformity [None]
  - Loose tooth [None]

NARRATIVE: CASE EVENT DATE: 20190712
